FAERS Safety Report 16167283 (Version 2)
Quarter: 2019Q2

REPORT INFORMATION
  Report Type: Spontaneous
  Country: BE (occurrence: BE)
  Receive Date: 20190408
  Receipt Date: 20190418
  Transmission Date: 20190711
  Serious: Yes (Other)
  Sender: FDA-Public Use
  Company Number: BE-ROCHE-2298168

PATIENT
  Sex: Female

DRUGS (1)
  1. XOLAIR [Suspect]
     Active Substance: OMALIZUMAB
     Indication: CHRONIC SPONTANEOUS URTICARIA
     Dosage: UNK
     Route: 065
     Dates: start: 2018

REACTIONS (4)
  - Angioedema [Unknown]
  - Laryngitis [Unknown]
  - Skin plaque [Unknown]
  - Chronic spontaneous urticaria [Not Recovered/Not Resolved]

NARRATIVE: CASE EVENT DATE: 201901
